FAERS Safety Report 9469713 (Version 2)
Quarter: 2013Q3

REPORT INFORMATION
  Report Type: Report from Study
  Country: MX (occurrence: MX)
  Receive Date: 20130822
  Receipt Date: 20130930
  Transmission Date: 20140515
  Serious: Yes (Other)
  Sender: FDA-Public Use
  Company Number: PHHY2013MX090358

PATIENT
  Age: 87 Year
  Sex: Female

DRUGS (4)
  1. DIOVAN [Suspect]
     Indication: HYPERTENSION
     Dosage: 0.5 DF (OF 80MG) DAILY
     Route: 048
     Dates: end: 201308
  2. FOSAMAX PLUS [Concomitant]
     Indication: BONE DISORDER
     Dosage: UNK UKN, UNK
     Dates: start: 201303
  3. DORIXINA//CLONIXIN [Concomitant]
     Indication: RIB FRACTURE
     Dosage: UNK UKN, UNK
  4. VARTALON [Concomitant]
     Indication: BONE DISORDER
     Dosage: UNK UKN, UNK

REACTIONS (7)
  - Cardiac hypertrophy [Not Recovered/Not Resolved]
  - Gastric disorder [Not Recovered/Not Resolved]
  - Gastrointestinal disorder [Not Recovered/Not Resolved]
  - Pain [Not Recovered/Not Resolved]
  - Hypertension [Not Recovered/Not Resolved]
  - Drug ineffective [Not Recovered/Not Resolved]
  - Wrong technique in drug usage process [Unknown]
